FAERS Safety Report 8524162-X (Version None)
Quarter: 2012Q3

REPORT INFORMATION
  Report Type: 
  Country: None (occurrence: None)
  Receive Date: 20120720
  Receipt Date: 20120713
  Transmission Date: 20120928
  Serious: Yes (Other)
  Sender: FDA-Public Use
  Company Number: SE-PFIZER INC-2012133557

PATIENT
  Age: 45 Year
  Sex: Female

DRUGS (4)
  1. DIAZEPAM [Concomitant]
     Dosage: UNK
  2. LYRICA [Suspect]
     Dosage: 225 MG, 3X/DAY
     Dates: start: 20120501
  3. LYRICA [Suspect]
     Indication: ANXIETY
     Dosage: 225 MG, 2X/DAY
     Dates: start: 20120229, end: 20120501
  4. LYRICA [Suspect]
     Dosage: 200 MG, 3X/DAY

REACTIONS (7)
  - ANXIETY [None]
  - VISUAL ACUITY REDUCED [None]
  - DRUG EFFECT DECREASED [None]
  - DRUG TOLERANCE INCREASED [None]
  - INTENTIONAL SELF-INJURY [None]
  - SUICIDAL IDEATION [None]
  - FATIGUE [None]
